FAERS Safety Report 14286236 (Version 1)
Quarter: 2017Q4

REPORT INFORMATION
  Report Type: Spontaneous
  Country: US (occurrence: US)
  Receive Date: 20171214
  Receipt Date: 20171214
  Transmission Date: 20180321
  Serious: No
  Sender: FDA-Public Use
  Company Number: US-ASTELLAS-2017US028480

PATIENT
  Sex: Female

DRUGS (2)
  1. TARCEVA [Suspect]
     Active Substance: ERLOTINIB HYDROCHLORIDE
     Indication: PRODUCT USED FOR UNKNOWN INDICATION
     Dosage: 150 MG, ONCE DAILY,ON AN EMPTY STOMACH
     Route: 048
     Dates: start: 20170105, end: 20170125
  2. TARCEVA [Suspect]
     Active Substance: ERLOTINIB HYDROCHLORIDE
     Dosage: 100 MG, ONCE DAILY,AS DIRECTED
     Route: 048
     Dates: start: 20170126

REACTIONS (4)
  - Urinary tract infection [Unknown]
  - Dry skin [Unknown]
  - Diarrhoea [Unknown]
  - Pruritus [Unknown]
